FAERS Safety Report 21737751 (Version 1)
Quarter: 2022Q4

REPORT INFORMATION
  Report Type: Spontaneous
  Country: CA (occurrence: CA)
  Receive Date: 20221216
  Receipt Date: 20221216
  Transmission Date: 20230113
  Serious: Yes (Other)
  Sender: FDA-Public Use
  Company Number: CA-AUROBINDO-AUR-APL-2022-052277

PATIENT
  Age: 77 Year
  Sex: Male

DRUGS (29)
  1. GABAPENTIN [Suspect]
     Active Substance: GABAPENTIN
     Indication: Parkinsonian rest tremor
     Dosage: UNK
     Route: 065
  2. GABAPENTIN [Suspect]
     Active Substance: GABAPENTIN
     Indication: Parkinson^s disease
  3. GABAPENTIN [Suspect]
     Active Substance: GABAPENTIN
     Indication: Head titubation
  4. PRAMIPEXOLE [Suspect]
     Active Substance: PRAMIPEXOLE
     Indication: Parkinson^s disease
     Dosage: 1 MILLIGRAM, 3 TIMES A DAY
     Route: 065
  5. PRAMIPEXOLE [Suspect]
     Active Substance: PRAMIPEXOLE
     Indication: Parkinsonian rest tremor
  6. PRAMIPEXOLE [Suspect]
     Active Substance: PRAMIPEXOLE
     Indication: Head titubation
  7. AMANTADINE [Suspect]
     Active Substance: AMANTADINE
     Indication: Parkinson^s disease
     Dosage: 100 MILLIGRAM, ONCE A DAY
     Route: 065
  8. AMANTADINE [Suspect]
     Active Substance: AMANTADINE
     Indication: Parkinsonian rest tremor
     Dosage: 200 MILLIGRAM, ONCE A DAY
     Route: 065
  9. AMANTADINE [Suspect]
     Active Substance: AMANTADINE
     Indication: Head titubation
  10. CLONAZEPAM [Suspect]
     Active Substance: CLONAZEPAM
     Indication: Parkinson^s disease
     Dosage: UNK
     Route: 065
  11. CLONAZEPAM [Suspect]
     Active Substance: CLONAZEPAM
     Indication: Parkinsonian rest tremor
  12. CLONAZEPAM [Suspect]
     Active Substance: CLONAZEPAM
     Indication: Head titubation
  13. BENSERAZIDE HYDROCHLORIDE\LEVODOPA [Suspect]
     Active Substance: BENSERAZIDE HYDROCHLORIDE\LEVODOPA
     Indication: Parkinson^s disease
     Dosage: UNK, 3 TIMES A DAY
     Route: 065
  14. BENSERAZIDE HYDROCHLORIDE\LEVODOPA [Suspect]
     Active Substance: BENSERAZIDE HYDROCHLORIDE\LEVODOPA
     Dosage: UNK, 3 TIMES A DAY
     Route: 065
  15. PRIMIDONE [Suspect]
     Active Substance: PRIMIDONE
     Indication: Parkinson^s disease
     Dosage: UNK
     Route: 065
  16. PRIMIDONE [Suspect]
     Active Substance: PRIMIDONE
     Indication: Parkinsonian rest tremor
  17. PRIMIDONE [Suspect]
     Active Substance: PRIMIDONE
     Indication: Head titubation
  18. PROPRANOLOL [Suspect]
     Active Substance: PROPRANOLOL HYDROCHLORIDE
     Indication: Parkinson^s disease
     Dosage: UNK
     Route: 065
  19. PROPRANOLOL [Suspect]
     Active Substance: PROPRANOLOL HYDROCHLORIDE
     Indication: Parkinsonian rest tremor
  20. PROPRANOLOL [Suspect]
     Active Substance: PROPRANOLOL HYDROCHLORIDE
     Indication: Head titubation
  21. ROPINIROLE [Suspect]
     Active Substance: ROPINIROLE
     Indication: Parkinson^s disease
     Dosage: UNK
     Route: 065
  22. ROPINIROLE [Suspect]
     Active Substance: ROPINIROLE
     Indication: Parkinsonian rest tremor
  23. ROPINIROLE [Suspect]
     Active Substance: ROPINIROLE
     Indication: Head titubation
  24. ETHOPROPAZINE [Concomitant]
     Active Substance: ETHOPROPAZINE
     Indication: Parkinson^s disease
     Dosage: UNK
     Route: 065
  25. ETHOPROPAZINE [Concomitant]
     Active Substance: ETHOPROPAZINE
     Indication: Parkinsonian rest tremor
  26. ETHOPROPAZINE [Concomitant]
     Active Substance: ETHOPROPAZINE
     Indication: Head titubation
  27. TRIHEXYPHENIDYL [Concomitant]
     Active Substance: TRIHEXYPHENIDYL
     Indication: Parkinson^s disease
     Dosage: 2 MILLIGRAM, 3 TIMES A DAY
     Route: 065
  28. TRIHEXYPHENIDYL [Concomitant]
     Active Substance: TRIHEXYPHENIDYL
     Indication: Parkinsonian rest tremor
  29. TRIHEXYPHENIDYL [Concomitant]
     Active Substance: TRIHEXYPHENIDYL
     Indication: Head titubation

REACTIONS (4)
  - Hallucination [Unknown]
  - Oedema peripheral [Unknown]
  - Somnolence [Unknown]
  - Off label use [Unknown]
